FAERS Safety Report 9045663 (Version 1)
Quarter: 2013Q1

REPORT INFORMATION
  Report Type: Report from Study
  Country: US (occurrence: US)
  Receive Date: 20130131
  Receipt Date: 20130131
  Transmission Date: 20140127
  Serious: No
  Sender: FDA-Public Use
  Company Number: US-ABBOTT-12P-163-1006960-00

PATIENT
  Sex: Female
  Weight: 95.34 kg

DRUGS (5)
  1. HUMIRA [Suspect]
     Indication: RHEUMATOID ARTHRITIS
     Dates: start: 201002
  2. METOPROLOL (NON-ABBOTT) [Concomitant]
     Indication: HYPERTENSION
  3. HCTZ (NON-ABBOTT) [Concomitant]
     Indication: FLUID RETENTION
  4. CALCIUM (NON-ABBOTT) [Concomitant]
     Indication: MINERAL SUPPLEMENTATION
  5. MULTIVITAMIN (NON-ABBOTT) [Concomitant]
     Indication: VITAMIN SUPPLEMENTATION

REACTIONS (1)
  - Sinusitis [Recovered/Resolved]
